FAERS Safety Report 5912516-7 (Version None)
Quarter: 2008Q4

REPORT INFORMATION
  Report Type: 
  Country: None (occurrence: None)
  Receive Date: 20081007
  Receipt Date: 20081007
  Transmission Date: 20090506
  Serious: Yes (Life-Threatening)
  Sender: FDA-Public Use
  Company Number: None

PATIENT
  Sex: Female
  Weight: 62.9593 kg

DRUGS (4)
  1. ALVESCO [Suspect]
     Indication: ASTHMA
     Dosage: ONE PUFF ONLY ONE DOSE INHAL
     Route: 055
     Dates: start: 20081006, end: 20081006
  2. NASONEX [Concomitant]
  3. PROVENTIL-HFA [Concomitant]
  4. PROAIR HFA [Concomitant]

REACTIONS (3)
  - ANAPHYLACTIC REACTION [None]
  - DIZZINESS [None]
  - DYSGEUSIA [None]
